FAERS Safety Report 11626435 (Version 1)
Quarter: 2015Q4

REPORT INFORMATION
  Report Type: Spontaneous
  Country: US (occurrence: US)
  Receive Date: 20151013
  Receipt Date: 20151013
  Transmission Date: 20160304
  Serious: No
  Sender: FDA-Public Use
  Company Number: US-ROCHE-1555494

PATIENT
  Age: 73 Year
  Sex: Female

DRUGS (2)
  1. VEMURAFENIB [Suspect]
     Active Substance: VEMURAFENIB
     Route: 065
  2. VEMURAFENIB [Suspect]
     Active Substance: VEMURAFENIB
     Indication: THYROID CANCER METASTATIC
     Route: 065
     Dates: start: 20120611

REACTIONS (3)
  - Diarrhoea [Unknown]
  - Rash erythematous [Unknown]
  - Rash pruritic [Unknown]
